FAERS Safety Report 11228700 (Version 3)
Quarter: 2015Q3

REPORT INFORMATION
  Report Type: Spontaneous
  Country: BR (occurrence: None)
  Receive Date: 20150626
  Receipt Date: 20150819
  Transmission Date: 20151125
  Serious: Yes (Other)
  Sender: FDA-Public Use
  Company Number: BR-2015VAL000414

PATIENT
  Age: 62 Year
  Sex: Female
  Weight: 74 kg

DRUGS (6)
  1. SOMALGEN (TALNIFLUMATE) TABLET, 100MG [Suspect]
     Active Substance: TALNIFLUMATE
     Indication: CARDIOVASCULAR DISORDER
  2. METOPROLOL TARTRATE (METOPROLOL TARTRATE) TABLET [Suspect]
     Active Substance: METOPROLOL TARTRATE
     Indication: PRODUCT USED FOR UNKNOWN INDICATION
     Dosage: BID IN THE MORNING AND NIGHT
  3. AMLODIPINE [Suspect]
     Active Substance: AMLODIPINE BESYLATE
     Indication: PRODUCT USED FOR UNKNOWN INDICATION
     Dosage: BID IN THE MORNING AND AT NIGHT
  4. HYDRALAZINE [Suspect]
     Active Substance: HYDRALAZINE HYDROCHLORIDE
     Indication: PRODUCT USED FOR UNKNOWN INDICATION
  5. RASILEZ HCT [Suspect]
     Active Substance: ALISKIREN\HYDROCHLOROTHIAZIDE
     Indication: HYPERTENSION
     Dosage: 1 DF, BID (ONE IN THE MORNING AND ANOTHER IN MIDDLE OF THE DAY, AROUND 2:00 PM), ORAL
     Route: 048
  6. OMEPRAZOLE (OMEPRAZOLE) [Suspect]
     Active Substance: OMEPRAZOLE
     Indication: PRODUCT USED FOR UNKNOWN INDICATION

REACTIONS (9)
  - Feeling abnormal [None]
  - Malaise [None]
  - Incorrect dose administered [None]
  - Tremor [None]
  - Product quality issue [None]
  - Extra dose administered [None]
  - No therapeutic response [None]
  - Dyspepsia [None]
  - Blood pressure increased [None]
